FAERS Safety Report 5998029-5 (Version None)
Quarter: 2008Q4

REPORT INFORMATION
  Report Type: 
  Country: None (occurrence: None)
  Receive Date: 20081213
  Receipt Date: 20081203
  Transmission Date: 20090506
  Serious: Yes (Death)
  Sender: FDA-Public Use
  Company Number: US-GENENTECH-273251

PATIENT
  Sex: Male

DRUGS (2)
  1. BEVACIZUMAB [Suspect]
     Indication: RENAL CELL CARCINOMA
     Dosage: 10 MG/KG, DAYS 1+15
     Route: 042
     Dates: start: 20071026
  2. INTERFERON ALPHA [Concomitant]
     Indication: RENAL CELL CARCINOMA
     Dosage: 9.0 MU, Q4W
     Route: 058

REACTIONS (1)
  - SUDDEN DEATH [None]
